FAERS Safety Report 4548385-X (Version None)
Quarter: 2005Q1

REPORT INFORMATION
  Report Type: 
  Country: None (occurrence: None)
  Receive Date: 20050110
  Receipt Date: 20041231
  Transmission Date: 20050727
  Serious: Yes (Hospitalization)
  Sender: FDA-Public Use
  Company Number: US-ROCHE-391310

PATIENT
  Age: 41 Year
  Sex: Female

DRUGS (4)
  1. PEGASYS [Suspect]
     Indication: HEPATITIS C
     Dosage: DOSAGE REPORTED AS ONE INJECTION PER WEEK.
     Route: 050
     Dates: start: 20041022
  2. COPEGUS [Suspect]
     Indication: HEPATITIS C
     Route: 048
     Dates: start: 20041022
  3. PROZAC [Concomitant]
     Indication: DEPRESSION
     Route: 065
  4. WELLBUTRIN [Concomitant]
     Indication: DRUG USE FOR UNKNOWN INDICATION
     Route: 065

REACTIONS (21)
  - ABDOMINAL PAIN [None]
  - ANXIETY [None]
  - CHEST PAIN [None]
  - CHEST X-RAY ABNORMAL [None]
  - DYSPNOEA [None]
  - EATING DISORDER [None]
  - FATIGUE [None]
  - GINGIVAL PAIN [None]
  - HALLUCINATION, AUDITORY [None]
  - INJECTION SITE HAEMORRHAGE [None]
  - INSOMNIA [None]
  - MENORRHAGIA [None]
  - MOUTH ULCERATION [None]
  - MUSCLE SPASMS [None]
  - ORAL PAIN [None]
  - PAIN [None]
  - PRURITUS [None]
  - PSYCHOTIC DISORDER [None]
  - RASH [None]
  - RASH ERYTHEMATOUS [None]
  - TOOTH EXTRACTION [None]
